FAERS Safety Report 18865264 (Version 1)
Quarter: 2021Q1

REPORT INFORMATION
  Report Type: Spontaneous
  Country: US (occurrence: US)
  Receive Date: 20210208
  Receipt Date: 20210208
  Transmission Date: 20210420
  Serious: Yes (Other)
  Sender: FDA-Public Use
  Company Number: None

PATIENT
  Age: 57 Year
  Sex: Female
  Weight: 68.85 kg

DRUGS (11)
  1. NAPROXEN. [Concomitant]
     Active Substance: NAPROXEN
  2. ONE?A?DAY MULTIVITAMIN [Concomitant]
  3. EXTRA ZINC [Concomitant]
  4. GOJI BERRY [Concomitant]
  5. AZO BLADDER CONTROL [Concomitant]
  6. PROGESTERONE. [Concomitant]
     Active Substance: PROGESTERONE
  7. HYDROCORTISONE. [Concomitant]
     Active Substance: HYDROCORTISONE
  8. VANDAZOLE [Suspect]
     Active Substance: METRONIDAZOLE
     Indication: BACTERIAL VAGINOSIS
     Dosage: ?          QUANTITY:1 APPLICATOR FULL;?
     Route: 067
     Dates: start: 20210111
  9. ESTRADIOL. [Concomitant]
     Active Substance: ESTRADIOL
  10. PROBIOTIC [Concomitant]
     Active Substance: PROBIOTICS NOS
  11. D?LIMONENE [Concomitant]

REACTIONS (15)
  - Vulvovaginal pruritus [None]
  - Pollakiuria [None]
  - Abdominal distension [None]
  - Urinary incontinence [None]
  - Vulvovaginal discomfort [None]
  - Bladder pain [None]
  - Decreased appetite [None]
  - Pain [None]
  - Vulval disorder [None]
  - Oedema genital [None]
  - Micturition urgency [None]
  - Back pain [None]
  - Constipation [None]
  - Uterine enlargement [None]
  - Abdominal pain [None]

NARRATIVE: CASE EVENT DATE: 20210118
